FAERS Safety Report 4628417-0 (Version None)
Quarter: 2005Q2

REPORT INFORMATION
  Report Type: 
  Country: None (occurrence: None)
  Receive Date: 20050401
  Receipt Date: 20050322
  Transmission Date: 20051028
  Serious: Yes (Hospitalization)
  Sender: FDA-Public Use
  Company Number: 2005048483

PATIENT
  Age: 68 Year
  Sex: Female
  Weight: 92.0802 kg

DRUGS (6)
  1. DETROL LA [Suspect]
     Indication: URINARY INCONTINENCE
     Dosage: (1 D), ORAL
     Route: 048
     Dates: start: 20000101, end: 20050101
  2. POTASSIUM ACETATE [Concomitant]
  3. ASPIRIN [Concomitant]
  4. CALCIUM CARBONATE (CALCIUM CARBONATE) [Concomitant]
  5. ENALAPRIL MALEATE [Concomitant]
  6. NEBACETIN (BACITRACIN, NEOMYCIN SULFATE) [Concomitant]

REACTIONS (3)
  - MALAISE [None]
  - PNEUMONIA [None]
  - VIRAL INFECTION [None]
